FAERS Safety Report 8297517 (Version 4)
Quarter: 2013Q4

REPORT INFORMATION
  Report Type: Report from Study
  Country: BE (occurrence: BE)
  Receive Date: 20111218
  Receipt Date: 20131022
  Transmission Date: 20140711
  Serious: Yes (Hospitalization, Other)
  Sender: FDA-Public Use
  Company Number: BE-ELI_LILLY_AND_COMPANY-BE201112001904

PATIENT
  Age: 62 Year
  Sex: Male

DRUGS (10)
  1. OLANZAPINE LONG-ACTING IM [Suspect]
     Indication: SCHIZOPHRENIA
     Dosage: 405 MG, EVERY 3 WEEKS
     Route: 030
     Dates: end: 20111027
  2. OLANZAPINE LONG-ACTING IM [Suspect]
     Dosage: 405 MG, UNKNOWN
     Route: 030
     Dates: start: 20111110, end: 20111110
  3. OLANZAPINE LONG-ACTING IM [Suspect]
     Dosage: 300 MG, EVERY THREE WEEKS
     Route: 030
     Dates: start: 20111130
  4. LIPITOR [Concomitant]
     Dosage: 20 MG, QD
  5. CARBAMAZEPINE [Concomitant]
     Dosage: 400 MG, QD
  6. RANITIDINE [Concomitant]
     Dosage: 300 MG, QD
  7. RIVOTRIL [Concomitant]
     Dosage: 2 MG, QD
  8. SEROQUEL [Concomitant]
     Dosage: 200 MG, QD
  9. AMLOR [Concomitant]
     Dosage: 5 MG, QD
  10. ASAFLOW [Concomitant]
     Dosage: 80 MG, QD

REACTIONS (18)
  - Haematemesis [Recovered/Resolved]
  - Metabolic alkalosis [Recovered/Resolved]
  - Toxicity to various agents [Recovered/Resolved]
  - Ileus paralytic [Recovered/Resolved]
  - Sedation [Recovered/Resolved]
  - Hypotension [Recovered/Resolved]
  - Confusional state [Recovered/Resolved]
  - Disorientation [Recovered/Resolved]
  - C-reactive protein increased [Unknown]
  - White blood cell count increased [Unknown]
  - Hyponatraemia [Unknown]
  - Incorrect route of drug administration [Recovered/Resolved]
  - Off label use [Recovered/Resolved]
  - Vomiting [Recovered/Resolved]
  - Pyrexia [Unknown]
  - Hyperglycaemia [Unknown]
  - Prescribed overdose [Recovered/Resolved]
  - Tachycardia [Recovered/Resolved]
